FAERS Safety Report 7272163-4 (Version None)
Quarter: 2011Q1

REPORT INFORMATION
  Report Type: 
  Country: None (occurrence: None)
  Receive Date: 20110203
  Receipt Date: 20110120
  Transmission Date: 20110831
  Serious: Yes (Other)
  Sender: FDA-Public Use
  Company Number: PHHY2011US06590

PATIENT
  Sex: Female

DRUGS (3)
  1. DIOVAN [Suspect]
     Dosage: 320 MG, UNK
  2. NORVASC [Suspect]
     Dosage: 10 MG, QD
     Route: 048
  3. WARFARIN SODIUM [Concomitant]

REACTIONS (5)
  - JOINT SWELLING [None]
  - BLOOD PRESSURE INADEQUATELY CONTROLLED [None]
  - ATRIAL FIBRILLATION [None]
  - OEDEMA PERIPHERAL [None]
  - ABDOMINAL DISTENSION [None]
